FAERS Safety Report 11279981 (Version 1)
Quarter: 2015Q3

REPORT INFORMATION
  Report Type: Spontaneous
  Country: FR (occurrence: FR)
  Receive Date: 20150717
  Receipt Date: 20150717
  Transmission Date: 20151125
  Serious: Yes (Hospitalization)
  Sender: FDA-Public Use
  Company Number: FR-MYLANLABS-2015M1023725

PATIENT

DRUGS (10)
  1. AMISULPRIDE [Suspect]
     Active Substance: AMISULPRIDE
     Indication: THINKING ABNORMAL
  2. OXAZEPAM. [Concomitant]
     Active Substance: OXAZEPAM
     Indication: THINKING ABNORMAL
  3. LOXAPINE. [Suspect]
     Active Substance: LOXAPINE
     Indication: ANXIETY
     Dosage: 150 MG/DAY
     Route: 065
  4. RISPERIDONE. [Suspect]
     Active Substance: RISPERIDONE
     Indication: ANXIETY
     Dosage: 6 MG/DAY
     Route: 065
  5. LOXAPINE. [Suspect]
     Active Substance: LOXAPINE
     Indication: THINKING ABNORMAL
  6. RISPERIDONE. [Suspect]
     Active Substance: RISPERIDONE
     Indication: THINKING ABNORMAL
  7. ARIPIPRAZOLE. [Suspect]
     Active Substance: ARIPIPRAZOLE
     Indication: ANXIETY
     Dosage: 15 MG/DAY, THEN 30 MG/DAY
     Route: 065
  8. OXAZEPAM. [Concomitant]
     Active Substance: OXAZEPAM
     Indication: ANXIETY
     Dosage: 150 MG/DAY
     Route: 065
  9. AMISULPRIDE [Suspect]
     Active Substance: AMISULPRIDE
     Indication: ANXIETY
     Dosage: 400 MG/DAY
     Route: 065
  10. ARIPIPRAZOLE. [Suspect]
     Active Substance: ARIPIPRAZOLE
     Indication: THINKING ABNORMAL
     Dosage: 30 MG/DAY
     Route: 065

REACTIONS (1)
  - Hepatotoxicity [Recovered/Resolved]
